FAERS Safety Report 8172808-0 (Version None)
Quarter: 2012Q1

REPORT INFORMATION
  Report Type: 
  Country: None (occurrence: None)
  Receive Date: 20120229
  Receipt Date: 20120224
  Transmission Date: 20120608
  Serious: Yes (Hospitalization)
  Sender: FDA-Public Use
  Company Number: PL-BAYER-2012-019027

PATIENT
  Age: 12 Year
  Sex: Female

DRUGS (8)
  1. VINCRISTINE [Suspect]
     Indication: NEUROBLASTOMA
  2. DACARBAZINE [Suspect]
     Indication: NEUROBLASTOMA
  3. CISPLATIN [Suspect]
     Indication: NEUROBLASTOMA
  4. TENIPOSIDE [Suspect]
     Indication: NEUROBLASTOMA
  5. IFOSFAMIDE [Suspect]
     Indication: NEUROBLASTOMA
  6. ETOPOSIDE [Suspect]
     Indication: NEUROBLASTOMA
  7. DOXORUBICIN HCL [Suspect]
     Indication: NEUROBLASTOMA
  8. CYCLOPHOSPHAMIDE [Suspect]
     Indication: NEUROBLASTOMA

REACTIONS (1)
  - RENAL CELL CARCINOMA [None]
